FAERS Safety Report 4623520-3 (Version None)
Quarter: 2005Q1

REPORT INFORMATION
  Report Type: 
  Country: None (occurrence: None)
  Receive Date: 20050330
  Receipt Date: 20050311
  Transmission Date: 20050727
  Serious: Yes (Other)
  Sender: FDA-Public Use
  Company Number: 2005-00563

PATIENT
  Age: 44 Year
  Sex: Female

DRUGS (1)
  1. TUBERSOL [Suspect]
     Indication: TUBERCULIN TEST
     Dosage: ROUTINE TEST
     Dates: start: 20050309

REACTIONS (7)
  - COUGH [None]
  - INJECTION SITE ERYTHEMA [None]
  - PRURITUS [None]
  - RASH [None]
  - SELF-MEDICATION [None]
  - THROAT IRRITATION [None]
  - THROAT TIGHTNESS [None]
